FAERS Safety Report 17107617 (Version 1)
Quarter: 2019Q4

REPORT INFORMATION
  Report Type: Report from Study
  Country: GB (occurrence: GB)
  Receive Date: 20191203
  Receipt Date: 20191203
  Transmission Date: 20200122
  Serious: Yes (Other)
  Sender: FDA-Public Use
  Company Number: GB-JNJFOC-20191141686

PATIENT
  Sex: Female

DRUGS (4)
  1. ADCAL                              /00056901/ [Concomitant]
     Active Substance: CARBAZOCHROME
  2. OMEPRAZOLE. [Concomitant]
     Active Substance: OMEPRAZOLE
  3. PARACETAMOL [Concomitant]
     Active Substance: ACETAMINOPHEN
  4. STELARA [Suspect]
     Active Substance: USTEKINUMAB
     Indication: PSORIATIC ARTHROPATHY
     Route: 058
     Dates: start: 20161201

REACTIONS (3)
  - Lower respiratory tract infection [Unknown]
  - Product dose omission [Unknown]
  - Psoriasis [Unknown]
